FAERS Safety Report 8308723-9 (Version None)
Quarter: 2012Q2

REPORT INFORMATION
  Report Type: 
  Country: None (occurrence: None)
  Receive Date: 20120424
  Receipt Date: 20120416
  Transmission Date: 20120825
  Serious: Yes (Life-Threatening)
  Sender: FDA-Public Use
  Company Number: FR-BRACCO-000815

PATIENT
  Sex: Male

DRUGS (4)
  1. AUGMENTIN '125' [Concomitant]
     Indication: PNEUMONIA ASPIRATION
  2. TRIMEPRAZINE TARTRATE [Concomitant]
     Indication: DELIRIUM
     Dates: start: 20120406
  3. LOVENOX [Concomitant]
  4. MULTIHANCE [Suspect]
     Indication: NUCLEAR MAGNETIC RESONANCE IMAGING BRAIN
     Route: 042
     Dates: start: 20120402, end: 20120402

REACTIONS (5)
  - DYSPNOEA [None]
  - CARDIAC ARREST [None]
  - NAUSEA [None]
  - MALAISE [None]
  - LOSS OF CONSCIOUSNESS [None]
